FAERS Safety Report 6297714-8 (Version None)
Quarter: 2009Q3

REPORT INFORMATION
  Report Type: 
  Country: None (occurrence: None)
  Receive Date: 20090805
  Receipt Date: 20090723
  Transmission Date: 20100115
  Serious: Yes (Hospitalization)
  Sender: FDA-Public Use
  Company Number: US-ROCHE-646010

PATIENT
  Sex: Male

DRUGS (3)
  1. TAMIFLU [Suspect]
     Indication: DRUG USE FOR UNKNOWN INDICATION
     Dosage: TOOK THREE DOSES
     Route: 065
     Dates: start: 20090720
  2. MOTRIN [Concomitant]
  3. TYLENOL (CAPLET) [Concomitant]

REACTIONS (5)
  - ARTHROPOD STING [None]
  - DEHYDRATION [None]
  - DRUG HYPERSENSITIVITY [None]
  - PYREXIA [None]
  - URTICARIA [None]
